FAERS Safety Report 18377432 (Version 1)
Quarter: 2020Q4

REPORT INFORMATION
  Report Type: Spontaneous
  Country: US (occurrence: US)
  Receive Date: 20201013
  Receipt Date: 20201013
  Transmission Date: 20210114
  Serious: Yes (Life-Threatening)
  Sender: FDA-Public Use
  Company Number: None

PATIENT
  Age: 44 Year
  Sex: Female
  Weight: 84.6 kg

DRUGS (8)
  1. AMIODARONE [Concomitant]
     Active Substance: AMIODARONE
     Dates: start: 20201009, end: 20201009
  2. REMDESIVIR EUA [Suspect]
     Active Substance: REMDESIVIR
     Indication: COVID-19
     Route: 042
     Dates: start: 20201005, end: 20201009
  3. DEXMEDETOMIDINE. [Concomitant]
     Active Substance: DEXMEDETOMIDINE
     Dates: start: 20201004, end: 20201009
  4. NOREPINEPHRINE. [Concomitant]
     Active Substance: NOREPINEPHRINE
     Dates: start: 20201005, end: 20201009
  5. FENTANYL. [Concomitant]
     Active Substance: FENTANYL
     Dates: start: 20201003, end: 20201009
  6. HEPARIN [Concomitant]
     Active Substance: HEPARIN SODIUM
     Dates: start: 20201005, end: 20201009
  7. PROPOFOL. [Concomitant]
     Active Substance: PROPOFOL
     Dates: start: 20201008, end: 20201009
  8. LANSOPRAZOLE. [Concomitant]
     Active Substance: LANSOPRAZOLE
     Dates: start: 20201006, end: 20201009

REACTIONS (4)
  - Aspartate aminotransferase increased [None]
  - Alanine aminotransferase increased [None]
  - Ischaemic hepatitis [None]
  - Hypoxia [None]

NARRATIVE: CASE EVENT DATE: 20201009
